FAERS Safety Report 22649651 (Version 1)
Quarter: 2023Q2

REPORT INFORMATION
  Report Type: Spontaneous
  Country: US (occurrence: None)
  Receive Date: 20230626
  Receipt Date: 20230626
  Transmission Date: 20230721
  Serious: No
  Sender: FDA-Public Use
  Company Number: None

PATIENT
  Sex: Male

DRUGS (1)
  1. ERLEADA [Suspect]
     Active Substance: APALUTAMIDE
     Dosage: FREQUENCY : DAILY;?
     Route: 048

REACTIONS (5)
  - Nausea [None]
  - Vomiting [None]
  - Diarrhoea [None]
  - Pyrexia [None]
  - Therapy cessation [None]
